FAERS Safety Report 7568835-4 (Version None)
Quarter: 2011Q2

REPORT INFORMATION
  Report Type: 
  Country: None (occurrence: None)
  Receive Date: 20110623
  Receipt Date: 20110614
  Transmission Date: 20111010
  Serious: Yes (Hospitalization)
  Sender: FDA-Public Use
  Company Number: US-JNJFOC-20100905332

PATIENT
  Sex: Female
  Weight: 88.6 kg

DRUGS (11)
  1. SIMVASTATIN [Concomitant]
     Route: 048
     Dates: start: 20091215
  2. HYDROCHLOROTHIAZIDE [Concomitant]
     Dates: start: 20060327
  3. LISINOPRIL [Concomitant]
     Route: 048
     Dates: start: 20070123
  4. USTEKINUMAB [Suspect]
     Indication: PSORIASIS
     Route: 058
     Dates: start: 20060515
  5. METFORMIN HCL [Concomitant]
     Route: 048
     Dates: start: 20080729
  6. MOTRIN [Concomitant]
     Route: 048
     Dates: start: 20100525
  7. USTEKINUMAB [Suspect]
     Route: 058
  8. FOLIC ACID [Concomitant]
     Route: 048
     Dates: start: 20070508
  9. RELAFEN [Concomitant]
     Route: 048
     Dates: start: 20081230
  10. PAROXETINE HCL [Concomitant]
     Route: 048
  11. ASPIRIN [Concomitant]
     Route: 048

REACTIONS (1)
  - ROTATOR CUFF SYNDROME [None]
